FAERS Safety Report 18285934 (Version 2)
Quarter: 2020Q4

REPORT INFORMATION
  Report Type: Report from Study
  Country: None (occurrence: DE)
  Receive Date: 20200919
  Receipt Date: 20201029
  Transmission Date: 20210113
  Serious: Yes (Death, Hospitalization)
  Sender: FDA-Public Use
  Company Number: DE-ABBVIE-20K-062-3573096-00

PATIENT
  Sex: Male

DRUGS (9)
  1. VITAMIN B6 [Concomitant]
     Active Substance: PYRIDOXINE HYDROCHLORIDE
     Indication: PRODUCT USED FOR UNKNOWN INDICATION
  2. FOLIC ACID. [Concomitant]
     Active Substance: FOLIC ACID
     Indication: PRODUCT USED FOR UNKNOWN INDICATION
  3. VITAMIN B12 [Concomitant]
     Active Substance: CYANOCOBALAMIN
     Indication: PRODUCT USED FOR UNKNOWN INDICATION
  4. MIDODRINE HYDROCHLORIDE. [Concomitant]
     Active Substance: MIDODRINE HYDROCHLORIDE
     Indication: PRODUCT USED FOR UNKNOWN INDICATION
  5. DUODOPA [Suspect]
     Active Substance: CARBIDOPA\LEVODOPA
  6. KALIUM VERLA [Concomitant]
     Active Substance: POTASSIUM CITRATE
     Indication: PRODUCT USED FOR UNKNOWN INDICATION
  7. DUODOPA [Suspect]
     Active Substance: CARBIDOPA\LEVODOPA
     Indication: PARKINSON^S DISEASE
     Dosage: MD 7.0 ML CRD 6.0ML/H CRN 2.0ML/H ED 2.5ML
     Route: 050
     Dates: start: 20190504
  8. GUDRON [Concomitant]
     Indication: PRODUCT USED FOR UNKNOWN INDICATION
     Dosage: DROPS
  9. LEVETIRACETAM. [Concomitant]
     Active Substance: LEVETIRACETAM
     Indication: PRODUCT USED FOR UNKNOWN INDICATION

REACTIONS (2)
  - Pneumonia aspiration [Fatal]
  - General physical health deterioration [Fatal]
